FAERS Safety Report 6340563-2 (Version None)
Quarter: 2009Q3

REPORT INFORMATION
  Report Type: 
  Country: None (occurrence: None)
  Receive Date: 20090904
  Receipt Date: 20090901
  Transmission Date: 20100115
  Serious: Yes (Other)
  Sender: FDA-Public Use
  Company Number: US-JNJFOC-20090901033

PATIENT
  Sex: Female
  Weight: 51.26 kg

DRUGS (5)
  1. FENTANYL TRANSDERMAL SYSTEM [Suspect]
     Indication: FACIAL PAIN
     Route: 062
  2. NEURONTIN [Concomitant]
     Indication: TRIGEMINAL NEURALGIA
     Dosage: 400 MG 2 CAPSULES TWICE DAILY
     Route: 048
  3. SYNTHROID [Concomitant]
     Indication: THYROID DISORDER
     Route: 048
  4. VERAPAMIL [Concomitant]
     Indication: CARDIAC DISORDER
     Dosage: ONEHALF OF 180 MG/DAILY
     Route: 048
  5. KLONOPIN [Concomitant]
     Indication: RESTLESS LEGS SYNDROME
     Route: 048

REACTIONS (2)
  - NEUROPATHY PERIPHERAL [None]
  - TREATMENT NONCOMPLIANCE [None]
